FAERS Safety Report 8589696 (Version 2)
Quarter: 2012Q4

REPORT INFORMATION
  Report Type: 
  Country: TR (occurrence: TR)
  Receive Date: 20120601
  Receipt Date: 20121129
  Transmission Date: 20130627
  Serious: Yes (Hospitalization, Other)
  Sender: FDA-Public Use
  Company Number: TR-AMGEN-TURSP2012033338

PATIENT
  Age: 36 Year
  Sex: Male

DRUGS (2)
  1. ENBREL [Suspect]
     Indication: ANKYLOSING SPONDYLITIS
     Dosage: 50 mg, weekly
     Route: 058
     Dates: start: 20110505, end: 20120501
  2. ENBREL [Suspect]
     Dosage: 50 mg, weekly
     Route: 058

REACTIONS (2)
  - Hip arthroplasty [Recovered/Resolved]
  - Procedural pain [Recovered/Resolved]
